FAERS Safety Report 6043798-1 (Version None)
Quarter: 2009Q1

REPORT INFORMATION
  Report Type: 
  Country: None (occurrence: None)
  Receive Date: 20090120
  Receipt Date: 20090115
  Transmission Date: 20090719
  Serious: Yes (Other)
  Sender: FDA-Public Use
  Company Number: PHHY2008BR28300

PATIENT
  Age: 60 Year
  Sex: Female

DRUGS (5)
  1. GALVUS MET COMBIPACK [Suspect]
     Indication: DIABETES MELLITUS
     Dosage: 500 MG OF METFORMIN AND UNSPECIFIED DOSAGE OF VILDAGLIPTIN
  2. GLUCOFORMIN [Concomitant]
     Dosage: 3 TAB/DAY
     Route: 048
  3. GLUCOFORMIN [Concomitant]
     Dosage: 2 TAB/DAY
  4. PURAN T4 [Concomitant]
     Indication: HYPOTHYROIDISM
     Dosage: 1 DF, QD
  5. FLUOXETINE [Concomitant]
     Indication: DEPRESSION
     Dosage: 40 MG/DAY

REACTIONS (10)
  - ABDOMINAL PAIN UPPER [None]
  - DECREASED APPETITE [None]
  - DIARRHOEA [None]
  - DYSGEUSIA [None]
  - INADEQUATE DIET [None]
  - LIVER DISORDER [None]
  - NAUSEA [None]
  - VIRAL INFECTION [None]
  - VOMITING [None]
  - WEIGHT DECREASED [None]
